FAERS Safety Report 5576572-0 (Version None)
Quarter: 2007Q4

REPORT INFORMATION
  Report Type: 
  Country: None (occurrence: None)
  Receive Date: 20071228
  Receipt Date: 20071012
  Transmission Date: 20080405
  Serious: No
  Sender: FDA-Public Use
  Company Number: A0687559A

PATIENT
  Sex: Male

DRUGS (3)
  1. FLOVENT [Suspect]
     Indication: ASTHMA
     Dosage: 1PUFF TWICE PER DAY
     Route: 055
  2. ALBUTEROL [Concomitant]
  3. SINGULAIR [Concomitant]

REACTIONS (2)
  - DIZZINESS [None]
  - DYSPNOEA [None]
